FAERS Safety Report 5861841-7 (Version None)
Quarter: 2008Q3

REPORT INFORMATION
  Report Type: 
  Country: None (occurrence: None)
  Receive Date: 20080826
  Receipt Date: 20080808
  Transmission Date: 20090109
  Serious: Yes (Death)
  Sender: FDA-Public Use
  Company Number: POMP-1000279

PATIENT
  Age: 12 Year
  Sex: Female
  Weight: 24.4 kg

DRUGS (7)
  1. MYOZYME [Suspect]
     Indication: GLYCOGEN STORAGE DISEASE TYPE II
     Dosage: 550 MG, QOW, INTRAVENOUS
     Route: 042
     Dates: start: 20060501, end: 20080802
  2. CAPTOPRIL [Concomitant]
  3. PROZAC [Concomitant]
  4. ISOSORBIDE MONONITRATE [Concomitant]
  5. ATARAX [Concomitant]
  6. SUCRALFATE [Concomitant]
  7. ACETYLCYSTEINE [Concomitant]

REACTIONS (4)
  - PLATELET COUNT INCREASED [None]
  - POST PROCEDURAL HAEMORRHAGE [None]
  - PULMONARY HAEMORRHAGE [None]
  - RESPIRATORY FAILURE [None]
